FAERS Safety Report 9767994 (Version 1)
Quarter: 2013Q4

REPORT INFORMATION
  Report Type: Spontaneous
  Country: US (occurrence: None)
  Receive Date: 20131217
  Receipt Date: 20131217
  Transmission Date: 20140711
  Serious: Yes (Hospitalization)
  Sender: FDA-Public Use
  Company Number: 2013BAX008907

PATIENT
  Age: 77 Year
  Sex: Female
  Weight: 98 kg

DRUGS (1)
  1. GAMMAGARD LIQUID [Suspect]
     Indication: HYPOGAMMAGLOBULINAEMIA
     Dosage: 1.3333 GM (40 GM, TAKES 4 -10 GRAM   VIALS),INTRAVENOUS? ?

REACTIONS (3)
  - Dyspnoea [None]
  - Chills [None]
  - Vomiting [None]
